FAERS Safety Report 10712362 (Version 3)
Quarter: 2015Q1

REPORT INFORMATION
  Report Type: Report from Study
  Country: DE (occurrence: DE)
  Receive Date: 20150115
  Receipt Date: 20150303
  Transmission Date: 20150721
  Serious: Yes (Other)
  Sender: FDA-Public Use
  Company Number: DE-ROCHE-1457672

PATIENT
  Sex: Male

DRUGS (6)
  1. RANIBIZUMAB [Suspect]
     Active Substance: RANIBIZUMAB
     Indication: AGE-RELATED MACULAR DEGENERATION
     Dosage: AS REQUIRED
     Route: 050
     Dates: start: 20121128, end: 20121128
  2. RANIBIZUMAB [Suspect]
     Active Substance: RANIBIZUMAB
     Route: 050
     Dates: start: 20131006, end: 20131006
  3. FLOXAL [Concomitant]
     Active Substance: OFLOXACIN
     Route: 065
  4. XALATAN [Concomitant]
     Active Substance: LATANOPROST
     Route: 047
     Dates: start: 20120611
  5. RANIBIZUMAB [Suspect]
     Active Substance: RANIBIZUMAB
     Route: 050
     Dates: start: 20131016, end: 20131016
  6. TRUSOPT [Concomitant]
     Active Substance: DORZOLAMIDE HYDROCHLORIDE
     Route: 047
     Dates: start: 20120611

REACTIONS (3)
  - Visual acuity reduced [Not Recovered/Not Resolved]
  - Retinal depigmentation [Not Recovered/Not Resolved]
  - Macular scar [Not Recovered/Not Resolved]
